FAERS Safety Report 17861356 (Version 1)
Quarter: 2020Q2

REPORT INFORMATION
  Report Type: Spontaneous
  Country: US (occurrence: US)
  Receive Date: 20200604
  Receipt Date: 20200604
  Transmission Date: 20200714
  Serious: Yes (Other)
  Sender: FDA-Public Use
  Company Number: US-AMERICAN REGENT INC-2020001125

PATIENT
  Age: 2 Year
  Sex: Male

DRUGS (6)
  1. PAMIDRONATE DISODIUM INJECTION (0745-01) [Suspect]
     Active Substance: PAMIDRONATE DISODIUM
     Indication: BONE DENSITY DECREASED
  2. PAMIDRONATE DISODIUM INJECTION (0745-01) [Suspect]
     Active Substance: PAMIDRONATE DISODIUM
     Indication: SPINAL MUSCULAR ATROPHY
     Dosage: 1.5 MILLIGRAM/KILOGRAM, Q3 MO
     Route: 042
  3. ZOLEDRONIC ACID [Suspect]
     Active Substance: ZOLEDRONIC ACID
     Indication: BONE DENSITY DECREASED
  4. ZOLEDRONIC ACID [Suspect]
     Active Substance: ZOLEDRONIC ACID
     Indication: OSTEOPOROSIS
  5. PAMIDRONATE DISODIUM INJECTION (0745-01) [Suspect]
     Active Substance: PAMIDRONATE DISODIUM
     Indication: OSTEOPOROSIS
  6. ZOLEDRONIC ACID [Suspect]
     Active Substance: ZOLEDRONIC ACID
     Indication: SPINAL MUSCULAR ATROPHY
     Dosage: 0.05 MILLIGRAM/KILOGRAM, Q 6 MO
     Route: 042

REACTIONS (3)
  - Atypical femur fracture [Recovered/Resolved]
  - Product use issue [Unknown]
  - Product use in unapproved indication [Unknown]
